FAERS Safety Report 16668869 (Version 1)
Quarter: 2019Q3

REPORT INFORMATION
  Report Type: Spontaneous
  Country: US (occurrence: US)
  Receive Date: 20190620
  Receipt Date: 20190620
  Transmission Date: 20191004
  Serious: Yes (Hospitalization)
  Sender: FDA-Public Use
  Company Number: None

PATIENT
  Age: 58 Year
  Sex: Female

DRUGS (11)
  1. AMRIX CAP [Concomitant]
  2. HUMIRA [Suspect]
     Active Substance: ADALIMUMAB
     Indication: PSORIASIS
     Route: 058
     Dates: start: 20171104
  3. LEVOTHYROVIN TAB [Concomitant]
  4. LEVOXYL TAB [Concomitant]
  5. NAPROXEN TAB [Concomitant]
  6. GABAPENTIN CAP [Concomitant]
  7. NAPROSYN TAB [Concomitant]
  8. ESCITALOPRAM TAB [Concomitant]
  9. FISH OIL CAP [Concomitant]
  10. PREDNISONE TAB [Concomitant]
     Active Substance: PREDNISONE
  11. CYCLOBENZAPR TAB [Concomitant]

REACTIONS (4)
  - Cholecystectomy [None]
  - Incision site swelling [None]
  - Rash pustular [None]
  - Incision site pain [None]

NARRATIVE: CASE EVENT DATE: 20190618
